FAERS Safety Report 5399598-9 (Version None)
Quarter: 2007Q3

REPORT INFORMATION
  Report Type: 
  Country: None (occurrence: None)
  Receive Date: 20070727
  Receipt Date: 20070718
  Transmission Date: 20080115
  Serious: Yes (Hospitalization)
  Sender: FDA-Public Use
  Company Number: IE-ABBOTT-07P-229-0375005-00

PATIENT
  Sex: Male

DRUGS (4)
  1. EPILIM CHRONO TABLET PR [Suspect]
     Indication: EPILEPSY
     Route: 048
     Dates: start: 20070601, end: 20070701
  2. EPILIM CHRONO TABLET PR [Suspect]
     Indication: TRAUMATIC BRAIN INJURY
     Route: 048
     Dates: start: 20070601
  3. LAMOTRIGINE [Interacting]
     Indication: EPILEPSY
     Route: 048
  4. LAMOTRIGINE [Interacting]
     Indication: TRAUMATIC BRAIN INJURY

REACTIONS (10)
  - ASTHENIA [None]
  - BALANCE DISORDER [None]
  - COORDINATION ABNORMAL [None]
  - DRUG INTERACTION [None]
  - DYSSTASIA [None]
  - ERYTHEMA [None]
  - FALL [None]
  - IMMOBILE [None]
  - MALAISE [None]
  - MOBILITY DECREASED [None]
